FAERS Safety Report 4352726-6 (Version None)
Quarter: 2004Q2

REPORT INFORMATION
  Report Type: 
  Country: None (occurrence: None)
  Receive Date: 20040504
  Receipt Date: 20040430
  Transmission Date: 20050107
  Serious: Yes (Other)
  Sender: FDA-Public Use
  Company Number: GBPFL-S-20040005

PATIENT
  Sex: Male

DRUGS (2)
  1. NAVELBINE [Suspect]
     Indication: ILL-DEFINED DISORDER
     Route: 042
  2. HYDROCORTISONE [Concomitant]
     Route: 042

REACTIONS (2)
  - DISCOMFORT [None]
  - MUSCLE SPASMS [None]
